FAERS Safety Report 6523157-5 (Version None)
Quarter: 2009Q4

REPORT INFORMATION
  Report Type: 
  Country: None (occurrence: None)
  Receive Date: 20091222
  Receipt Date: 20091211
  Transmission Date: 20100525
  Serious: Yes (Hospitalization, Other)
  Sender: FDA-Public Use
  Company Number: 2009AP005034

PATIENT
  Age: 27 Year
  Sex: Female

DRUGS (13)
  1. RISPERIDONE [Suspect]
     Dosage: 50 MG;, 37.5 MG;
     Dates: start: 20060926, end: 20061026
  2. RISPERIDONE [Suspect]
     Dosage: 50 MG;, 37.5 MG;
     Dates: start: 20060926, end: 20070101
  3. RISPERIDONE [Suspect]
     Dosage: 50 MG;, 37.5 MG;
     Dates: start: 20061026, end: 20070101
  4. RISPERIDONE [Suspect]
     Indication: SCHIZOAFFECTIVE DISORDER
     Dosage: 50 MG; 1X IM
     Route: 030
     Dates: start: 20070101, end: 20070412
  5. CHLORPROMAZINE [Concomitant]
  6. CITALOPRAM HYDROBROMIDE [Concomitant]
  7. DIAZEPAM [Concomitant]
  8. ESCITALOPRAM [Concomitant]
  9. GLATIRAMER ACETATE (GLATIRAMER ACETATE) [Concomitant]
  10. METFORMIN HCL [Concomitant]
  11. PROCYCLIDINE HYDROCHLORIDE 2MG TAB [Concomitant]
  12. ZUCLOPENTHIXOL ACETATE (ZUCLOPENTHIXOL ACETATE) [Concomitant]
  13. QUETIAPINE FUMARATE [Concomitant]

REACTIONS (8)
  - BLOOD PRESSURE INCREASED [None]
  - CHEST PAIN [None]
  - CONVULSION [None]
  - DYSPNOEA [None]
  - ORTHOSTATIC HYPOTENSION [None]
  - PSYCHOTIC DISORDER [None]
  - SEDATION [None]
  - SINUS TACHYCARDIA [None]
